FAERS Safety Report 14966920 (Version 6)
Quarter: 2019Q4

REPORT INFORMATION
  Report Type: Spontaneous
  Country: US (occurrence: US)
  Receive Date: 20180604
  Receipt Date: 20191115
  Transmission Date: 20200122
  Serious: No
  Sender: FDA-Public Use
  Company Number: US-009507513-1806USA000281

PATIENT
  Age: 80 Year
  Sex: Male

DRUGS (4)
  1. KEYTRUDA [Suspect]
     Active Substance: PEMBROLIZUMAB
     Dosage: UNK
     Dates: start: 201910, end: 201910
  2. KEYTRUDA [Suspect]
     Active Substance: PEMBROLIZUMAB
     Indication: NON-SMALL CELL LUNG CANCER
     Dosage: UNK
  3. KEYTRUDA [Suspect]
     Active Substance: PEMBROLIZUMAB
     Dosage: UNK
     Dates: start: 20191023
  4. KEYTRUDA [Suspect]
     Active Substance: PEMBROLIZUMAB
     Dosage: UNK
     Dates: start: 20190925

REACTIONS (11)
  - Muscular weakness [Recovering/Resolving]
  - Haemoglobin abnormal [Unknown]
  - Colitis [Recovered/Resolved]
  - Dehydration [Unknown]
  - Diarrhoea [Recovered/Resolved]
  - Haemoptysis [Unknown]
  - Inappropriate schedule of product administration [Unknown]
  - Diarrhoea [Unknown]
  - Musculoskeletal disorder [Recovering/Resolving]
  - Blood glucose increased [Unknown]
  - Pain [Unknown]

NARRATIVE: CASE EVENT DATE: 20181012
